FAERS Safety Report 8171782-0 (Version None)
Quarter: 2012Q1

REPORT INFORMATION
  Report Type: 
  Country: None (occurrence: None)
  Receive Date: 20120228
  Receipt Date: 20120223
  Transmission Date: 20120608
  Serious: Yes (Hospitalization)
  Sender: FDA-Public Use
  Company Number: US-GLAXOSMITHKLINE-A0967411A

PATIENT
  Age: 58 Year
  Sex: Female
  Weight: 69.4 kg

DRUGS (14)
  1. SPIRONOLACTONE [Concomitant]
     Dosage: 25MG PER DAY
  2. DAPSONE [Concomitant]
     Dosage: 100MG PER DAY
  3. FLOLAN [Suspect]
     Indication: PULMONARY ARTERIAL HYPERTENSION
     Dosage: 7.94NGKM SEE DOSAGE TEXT
     Route: 042
     Dates: start: 20120120
  4. LISINOPRIL [Concomitant]
     Dosage: 5MG PER DAY
  5. SYMBICORT [Concomitant]
  6. ACETAMINOPHEN [Concomitant]
     Dosage: 650MG AS REQUIRED
  7. DIGOXIN [Concomitant]
     Dosage: 125MCG PER DAY
  8. COMBIVENT [Concomitant]
  9. FISH OIL [Concomitant]
  10. MULTI-VITAMIN [Concomitant]
  11. SINGULAIR [Concomitant]
     Dosage: 10MG AT NIGHT
  12. PREDNISONE [Concomitant]
     Dosage: 10MG PER DAY
  13. METOPROLOL TARTRATE [Concomitant]
     Dosage: 50MG TWICE PER DAY
  14. LASIX [Concomitant]
     Dosage: 40MG PER DAY

REACTIONS (6)
  - VOMITING [None]
  - DEHYDRATION [None]
  - COUGH [None]
  - DYSPNOEA [None]
  - NAUSEA [None]
  - DIARRHOEA [None]
